FAERS Safety Report 8325136-4 (Version None)
Quarter: 2012Q2

REPORT INFORMATION
  Report Type: 
  Country: None (occurrence: None)
  Receive Date: 20120427
  Receipt Date: 20120418
  Transmission Date: 20120825
  Serious: Yes (Other)
  Sender: FDA-Public Use
  Company Number: DKLU1078671

PATIENT
  Age: 50 Year
  Sex: Male

DRUGS (1)
  1. ONFI [Suspect]
     Indication: EPILEPSY
     Dosage: 10 MG MILLIGRAM(S), ORAL
     Route: 048
     Dates: start: 20050101

REACTIONS (4)
  - AMNESIA [None]
  - BALANCE DISORDER [None]
  - SUICIDAL IDEATION [None]
  - RASH [None]
